FAERS Safety Report 4511476-3 (Version None)
Quarter: 2004Q4

REPORT INFORMATION
  Report Type: 
  Country: None (occurrence: None)
  Receive Date: 20041129
  Receipt Date: 20040826
  Transmission Date: 20050328
  Serious: No
  Sender: FDA-Public Use
  Company Number: US-BRISTOL-MYERS SQUIBB COMPANY-12684411

PATIENT
  Age: 18 Year
  Sex: Male
  Weight: 118 kg

DRUGS (5)
  1. ABILIFY [Suspect]
     Indication: BIPOLAR DISORDER
     Route: 048
  2. ADVAIR [Concomitant]
  3. DIOVAN [Concomitant]
  4. TRILEPTAL [Concomitant]
     Dosage: 600 MG/AM, 900 MG/PM
  5. BUSPAR [Concomitant]

REACTIONS (2)
  - BLEPHAROSPASM [None]
  - DRY EYE [None]
